FAERS Safety Report 8950866 (Version 1)
Quarter: 2012Q4

REPORT INFORMATION
  Report Type: Spontaneous
  Country: US (occurrence: None)
  Receive Date: 20121130
  Receipt Date: 20121130
  Transmission Date: 20130627
  Serious: Yes (Hospitalization)
  Sender: FDA-Public Use
  Company Number: None

PATIENT
  Age: 73 Year
  Sex: Male
  Weight: 61 kg

DRUGS (10)
  1. PHENOBARBITAL [Suspect]
     Indication: SEIZURE
     Route: 048
  2. ASPIRIN [Concomitant]
  3. CLOPIDOGREL [Concomitant]
  4. DOCUSATE-SENNA [Concomitant]
  5. ERGOCALCIFEROL [Concomitant]
  6. FLUTICASONE/SALMETEROL [Concomitant]
  7. LISINOPRIL [Concomitant]
  8. MULTIVITAMIN [Concomitant]
  9. SIMVASTATIN [Concomitant]
  10. RANITIDE [Concomitant]

REACTIONS (7)
  - Pain in extremity [None]
  - Ataxia [None]
  - Anticonvulsant drug level increased [None]
  - Toxicity to various agents [None]
  - Incorrect dose administered [None]
  - Drug prescribing error [None]
  - Product substitution issue [None]
